FAERS Safety Report 7042308-X (Version None)
Quarter: 2010Q4

REPORT INFORMATION
  Report Type: 
  Country: None (occurrence: None)
  Receive Date: 20101013
  Receipt Date: 20091015
  Transmission Date: 20110411
  Serious: No
  Sender: FDA-Public Use
  Company Number: US-ASTRAZENECA-2009SE20408

PATIENT
  Age: 32021 Day
  Sex: Male

DRUGS (7)
  1. SYMBICORT [Suspect]
     Indication: DYSPNOEA
     Dosage: TWO PUFFS IN THE MORNING AND TWO AT NIGHT
     Route: 055
     Dates: start: 20091005
  2. PROAIR HFA [Concomitant]
  3. PO24 [Concomitant]
  4. LODRANE [Concomitant]
  5. GLUCOSIDE [Concomitant]
  6. LISINO-HCTZ [Concomitant]
  7. LIPITOR [Concomitant]

REACTIONS (2)
  - INCREASED UPPER AIRWAY SECRETION [None]
  - SINUSITIS [None]
